FAERS Safety Report 9129431 (Version 3)
Quarter: 2014Q2

REPORT INFORMATION
  Report Type: Spontaneous
  Country: US (occurrence: US)
  Receive Date: 20130228
  Receipt Date: 20140411
  Transmission Date: 20141212
  Serious: Yes (Hospitalization)
  Sender: FDA-Public Use
  Company Number: US-GLAXOSMITHKLINE-A0996464A

PATIENT
  Age: 44 Year
  Sex: Male
  Weight: 120.5 kg

DRUGS (1)
  1. AVANDIA [Suspect]
     Indication: DIABETES MELLITUS
     Dosage: 4MG TWICE PER DAY
     Route: 048
     Dates: start: 200404, end: 200708

REACTIONS (3)
  - Acute myocardial infarction [Unknown]
  - Acute coronary syndrome [Unknown]
  - Ischaemic cardiomyopathy [Unknown]
